FAERS Safety Report 10493485 (Version 1)
Quarter: 2014Q4

REPORT INFORMATION
  Report Type: Spontaneous
  Country: US (occurrence: US)
  Receive Date: 20141002
  Receipt Date: 20141002
  Transmission Date: 20150528
  Serious: No
  Sender: FDA-Public Use
  Company Number: US-GLAXOSMITHKLINE-A1084704A

PATIENT
  Age: 50 Year
  Sex: Female

DRUGS (7)
  1. NEBULIZER [Concomitant]
     Active Substance: UNSPECIFIED INGREDIENT
  2. PROAIR HFA [Concomitant]
     Active Substance: ALBUTEROL SULFATE
  3. OXYGEN. [Concomitant]
     Active Substance: OXYGEN
  4. PROTONIX [Concomitant]
     Active Substance: PANTOPRAZOLE SODIUM
  5. ADVAIR HFA [Suspect]
     Active Substance: FLUTICASONE PROPIONATE\SALMETEROL XINAFOATE
     Indication: CHRONIC OBSTRUCTIVE PULMONARY DISEASE
     Dosage: 1PUFF TWICE PER DAY
     Route: 055
  6. NORCO [Concomitant]
     Active Substance: ACETAMINOPHEN\HYDROCODONE BITARTRATE
  7. OXYCODONE [Concomitant]
     Active Substance: OXYCODONE

REACTIONS (4)
  - Product quality issue [Unknown]
  - Drug administration error [Unknown]
  - Drug effect decreased [Unknown]
  - Dyspnoea [Unknown]
